FAERS Safety Report 17022568 (Version 11)
Quarter: 2020Q3

REPORT INFORMATION
  Report Type: Report from Study
  Country: US (occurrence: US)
  Receive Date: 20191112
  Receipt Date: 20200807
  Transmission Date: 20201102
  Serious: Yes (Hospitalization, Other)
  Sender: FDA-Public Use
  Company Number: NVSC2019US026579

PATIENT
  Age: 43 Year
  Sex: Female
  Weight: 71.2 kg

DRUGS (13)
  1. ORENITRAM [Suspect]
     Active Substance: TREPROSTINIL
     Dosage: 6 MG, Q8H (1 MG TABLET)
     Route: 048
  2. ORENITRAM [Suspect]
     Active Substance: TREPROSTINIL
     Dosage: 0.5 MG, Q8H (0.25 MG TABLET)
     Route: 048
  3. ORENITRAM [Suspect]
     Active Substance: TREPROSTINIL
     Dosage: 6.5 MG, Q8H
     Route: 048
     Dates: start: 202006
  4. ORENITRAM [Suspect]
     Active Substance: TREPROSTINIL
     Dosage: 2.5 MG
     Route: 048
  5. ELIQUIS [Concomitant]
     Active Substance: APIXABAN
     Indication: PRODUCT USED FOR UNKNOWN INDICATION
     Dosage: UNK
     Route: 065
  6. TRAMADOL. [Concomitant]
     Active Substance: TRAMADOL
     Indication: PRODUCT USED FOR UNKNOWN INDICATION
     Route: 065
  7. TREPROSTINIL. [Suspect]
     Active Substance: TREPROSTINIL
     Dosage: UNK, CONT (25 NG/KG/MIN)
     Route: 042
     Dates: start: 20191021
  8. TREPROSTINIL. [Suspect]
     Active Substance: TREPROSTINIL
     Dosage: 40 OT, CONT (NG/KG/MIN)
     Route: 042
  9. TREPROSTINIL. [Suspect]
     Active Substance: TREPROSTINIL
     Dosage: UNK (38 NG/KG/MIN, CONTINOUS)
     Route: 042
     Dates: start: 20191021
  10. TREPROSTINIL. [Suspect]
     Active Substance: TREPROSTINIL
     Dosage: UNK
     Route: 042
  11. SILDENAFIL CITRATE. [Concomitant]
     Active Substance: SILDENAFIL CITRATE
     Indication: PRODUCT USED FOR UNKNOWN INDICATION
     Dosage: UNK
     Route: 065
  12. TREPROSTINIL. [Suspect]
     Active Substance: TREPROSTINIL
     Indication: PULMONARY ARTERIAL HYPERTENSION
     Dosage: UNK, CONT (40 NG/KG/MIN)
     Route: 042
     Dates: start: 20191021
  13. ORENITRAM [Suspect]
     Active Substance: TREPROSTINIL
     Indication: PRODUCT USED FOR UNKNOWN INDICATION
     Dosage: UNK MG
     Route: 048
     Dates: start: 20200521

REACTIONS (25)
  - Swelling [Unknown]
  - Fluid retention [Unknown]
  - Painful respiration [Unknown]
  - Constipation [Unknown]
  - Weight increased [Unknown]
  - Spina bifida [Unknown]
  - Paraplegia [Unknown]
  - Rhinorrhoea [Unknown]
  - Cough [Unknown]
  - Oedema [Unknown]
  - Chest pain [Unknown]
  - Headache [Unknown]
  - Atypical pneumonia [Unknown]
  - Rectal prolapse [Unknown]
  - Peripheral swelling [Unknown]
  - Diarrhoea [Unknown]
  - Oedema peripheral [Unknown]
  - Rectal prolapse [Unknown]
  - Sinus disorder [Unknown]
  - Fatigue [Unknown]
  - Fluid overload [Unknown]
  - Faeces soft [Unknown]
  - Pulmonary artery occlusion [Unknown]
  - Dyspnoea [Unknown]
  - Arthralgia [Unknown]

NARRATIVE: CASE EVENT DATE: 202005
